FAERS Safety Report 10033977 (Version 1)
Quarter: 2014Q1

REPORT INFORMATION
  Report Type: Spontaneous
  Country: SI (occurrence: None)
  Receive Date: 20140320
  Receipt Date: 20140320
  Transmission Date: 20141002
  Serious: Yes (Other)
  Sender: FDA-Public Use
  Company Number: SI-SEPTODONT-201401783

PATIENT
  Age: 6 Year
  Sex: Male

DRUGS (1)
  1. SCANDICAINE [Suspect]
     Indication: LOCAL ANAESTHESIA
     Route: 004
     Dates: start: 20140131, end: 20140131

REACTIONS (2)
  - Oedema [None]
  - Angioedema [None]
